FAERS Safety Report 9727516 (Version 6)
Quarter: 2014Q2

REPORT INFORMATION
  Report Type: Report from Study
  Country: FR (occurrence: FR)
  Receive Date: 20131203
  Receipt Date: 20140630
  Transmission Date: 20141212
  Serious: Yes (Hospitalization, Other)
  Sender: FDA-Public Use
  Company Number: FR-TEVA-446367USA

PATIENT
  Age: 55 Year
  Sex: Male

DRUGS (12)
  1. BENDAMUSTINE [Suspect]
     Indication: PLASMA CELL MYELOMA
     Dosage: REGIMEN 1
     Route: 042
     Dates: start: 20120925, end: 20121022
  2. BENDAMUSTINE [Suspect]
     Dosage: REGIMEN 2
     Route: 042
     Dates: start: 20121023
  3. VELCADE [Suspect]
     Indication: PLASMA CELL MYELOMA
     Dosage: REGIMEN 1
     Dates: start: 20090818
  4. VELCADE [Suspect]
     Dosage: REGIMEN 2
     Dates: start: 20120925
  5. VELCADE [Suspect]
     Dosage: REGIMEN 3
     Dates: start: 20121023
  6. DEXAMETHASONE [Suspect]
     Indication: PLASMA CELL MYELOMA
     Dosage: REGIMEN 1
     Dates: start: 20090818, end: 201302
  7. DEXAMETHASONE [Suspect]
     Dosage: REGIMEN 2
     Dates: start: 20120925
  8. DEXAMETHASONE [Suspect]
     Dosage: REGIMEN 3
     Dates: start: 20121023
  9. DEXAMETHASONE [Suspect]
     Dosage: REGIMEN 4
     Dates: start: 20121119
  10. DEXAMETHASONE [Suspect]
     Dates: end: 201302
  11. NEULASTA [Concomitant]
     Dates: start: 20121101
  12. ACETYLSALICYLATE LYSINE [Concomitant]
     Dates: start: 201211

REACTIONS (3)
  - VIIth nerve paralysis [Recovered/Resolved with Sequelae]
  - Plasma cell myeloma [Unknown]
  - Vision blurred [Recovered/Resolved]
